FAERS Safety Report 7496769-2 (Version None)
Quarter: 2011Q2

REPORT INFORMATION
  Report Type: 
  Country: None (occurrence: None)
  Receive Date: 20110523
  Receipt Date: 20110510
  Transmission Date: 20111010
  Serious: Yes (Other)
  Sender: FDA-Public Use
  Company Number: B0719031A

PATIENT
  Age: 50 Year
  Sex: Female

DRUGS (2)
  1. LUTERAN [Concomitant]
     Route: 048
  2. VALACYCLOVIR HYDROCHLORIDE [Suspect]
     Route: 048
     Dates: start: 20110101

REACTIONS (6)
  - PETECHIAE [None]
  - ERYTHEMA NODOSUM [None]
  - ABDOMINAL PAIN [None]
  - PURPURA [None]
  - HENOCH-SCHONLEIN PURPURA [None]
  - POLYARTHRITIS [None]
